FAERS Safety Report 7574717-4 (Version None)
Quarter: 2011Q2

REPORT INFORMATION
  Report Type: 
  Country: None (occurrence: None)
  Receive Date: 20110627
  Receipt Date: 20110127
  Transmission Date: 20111010
  Serious: Yes (Other)
  Sender: FDA-Public Use
  Company Number: US-BAYER-201036414NA

PATIENT
  Age: 23 Year
  Sex: Female
  Weight: 61.224 kg

DRUGS (3)
  1. YASMIN [Suspect]
     Indication: ACNE
     Dosage: UNK
     Route: 048
     Dates: start: 20061201, end: 20070901
  2. LEVOTHYROXINE SODIUM [Concomitant]
     Indication: HYPOTHYROIDISM
     Dosage: UNK
     Dates: start: 20070901, end: 20091201
  3. NSAID'S [Concomitant]
     Dosage: UNK UNK, PRN

REACTIONS (3)
  - THROMBOPHLEBITIS SUPERFICIAL [None]
  - INJURY [None]
  - THROMBOSIS [None]
